FAERS Safety Report 14475159 (Version 1)
Quarter: 2018Q1

REPORT INFORMATION
  Report Type: Spontaneous
  Country: CN (occurrence: CN)
  Receive Date: 20180201
  Receipt Date: 20180201
  Transmission Date: 20180509
  Serious: Yes (Other)
  Sender: FDA-Public Use
  Company Number: CN-PFIZER INC-2018042072

PATIENT
  Age: 63 Year
  Sex: Female
  Weight: 58 kg

DRUGS (2)
  1. LIPITOR [Suspect]
     Active Substance: ATORVASTATIN CALCIUM
     Indication: HYPERLIPIDAEMIA
     Dosage: 20 MG, ONCE DAILY
     Route: 048
     Dates: start: 20171202, end: 20171204
  2. BETALOC /00376902/ [Concomitant]
     Active Substance: METOPROLOL TARTRATE
     Indication: HYPERTENSION
     Dosage: 25 MG, TWICE DAILY
     Route: 048
     Dates: start: 20171201, end: 20171206

REACTIONS (5)
  - Purpura [Recovered/Resolved]
  - Face oedema [Recovered/Resolved]
  - Appetite disorder [Recovered/Resolved]
  - Pruritus [Recovered/Resolved]
  - Mental disorder [Recovered/Resolved]

NARRATIVE: CASE EVENT DATE: 20171204
